FAERS Safety Report 8602209-X (Version None)
Quarter: 2012Q3

REPORT INFORMATION
  Report Type: 
  Country: None (occurrence: None)
  Receive Date: 20120817
  Receipt Date: 20120814
  Transmission Date: 20120928
  Serious: Yes (Other)
  Sender: FDA-Public Use
  Company Number: US-PFIZER INC-2012106390

PATIENT
  Age: 70 Year
  Sex: Male
  Weight: 100 kg

DRUGS (6)
  1. NICOTROL [Suspect]
     Dosage: 3 TO 4 PACKAGES PER DAY
     Dates: start: 20120803
  2. NICOTROL [Suspect]
     Indication: SMOKING CESSATION THERAPY
     Dosage: UNK
  3. PROAIR HFA [Concomitant]
     Indication: CHRONIC OBSTRUCTIVE PULMONARY DISEASE
     Dosage: UNK
  4. CHANTIX [Suspect]
     Indication: SMOKING CESSATION THERAPY
     Dosage: UNK
  5. LISINOPRIL [Concomitant]
     Indication: HYPERTENSION
     Dosage: 5 MG, DAILY
  6. ZYPREXA [Concomitant]
     Dosage: 5 MG, DAILY

REACTIONS (8)
  - AGGRESSION [None]
  - DRUG INEFFECTIVE [None]
  - SELF-INJURIOUS IDEATION [None]
  - WITHDRAWAL SYNDROME [None]
  - PRURITUS [None]
  - MALAISE [None]
  - SUICIDAL IDEATION [None]
  - HOMICIDAL IDEATION [None]
